FAERS Safety Report 11401008 (Version 3)
Quarter: 2015Q4

REPORT INFORMATION
  Report Type: Report from Study
  Country: NL (occurrence: NL)
  Receive Date: 20150820
  Receipt Date: 20151007
  Transmission Date: 20160304
  Serious: Yes (Hospitalization, Other)
  Sender: FDA-Public Use
  Company Number: NL-ABBVIE-15P-114-1446361-00

PATIENT
  Age: 67 Year
  Sex: Male

DRUGS (1)
  1. DUODOPA [Suspect]
     Active Substance: CARBIDOPA\LEVODOPA
     Indication: PARKINSON^S DISEASE
     Dosage: MORNING DOSE: 18.5 CONTINUOUS DOSE: 9.1 EXTRA DOSE: 4 NIGHT DOSE: 5.9
     Route: 050
     Dates: start: 20150428

REACTIONS (8)
  - Fall [Unknown]
  - Parkinson^s disease [Not Recovered/Not Resolved]
  - Parkinsonism [Not Recovered/Not Resolved]
  - Painful defaecation [Recovered/Resolved]
  - Hyperhidrosis [Not Recovered/Not Resolved]
  - Constipation [Recovered/Resolved]
  - Stoma site hypersensitivity [Not Recovered/Not Resolved]
  - Stoma site inflammation [Recovered/Resolved]

NARRATIVE: CASE EVENT DATE: 20150819
